FAERS Safety Report 5383759-9 (Version None)
Quarter: 2007Q3

REPORT INFORMATION
  Report Type: 
  Country: None (occurrence: None)
  Receive Date: 20070711
  Receipt Date: 20070629
  Transmission Date: 20080115
  Serious: Yes (Hospitalization, Other)
  Sender: FDA-Public Use
  Company Number: PHBS2007NO11433

PATIENT
  Sex: Male

DRUGS (3)
  1. CYCLOSPORINE [Suspect]
     Indication: LIVER TRANSPLANT
     Route: 065
     Dates: start: 19940101, end: 20050501
  2. AZATHIOPRINE [Suspect]
     Dates: start: 19940101
  3. MYCOPHENOLATE MOFETIL [Suspect]
     Indication: LIVER TRANSPLANT
     Dosage: 1 G, BID
     Route: 065
     Dates: start: 20050501

REACTIONS (11)
  - ABDOMINAL PAIN [None]
  - BK VIRUS INFECTION [None]
  - BLOOD CREATININE INCREASED [None]
  - CYSTITIS HAEMORRHAGIC [None]
  - GLOMERULONEPHRITIS PROLIFERATIVE [None]
  - HAEMATURIA [None]
  - HUMAN POLYOMAVIRUS INFECTION [None]
  - HYPERTENSION [None]
  - JC VIRUS INFECTION [None]
  - NEPHROPATHY TOXIC [None]
  - PROTEINURIA [None]
